FAERS Safety Report 14923887 (Version 1)
Quarter: 2018Q2

REPORT INFORMATION
  Report Type: Spontaneous
  Country: US (occurrence: US)
  Receive Date: 20180503
  Receipt Date: 20180503
  Transmission Date: 20180711
  Serious: Yes (Death, Life-Threatening, Hospitalization, Disabling)
  Sender: FDA-Public Use
  Company Number: None

PATIENT
  Age: 31 Year
  Sex: Male
  Weight: 83.7 kg

DRUGS (10)
  1. DEPOCYT [Suspect]
     Active Substance: CYTARABINE
     Indication: ACUTE MYELOID LEUKAEMIA
     Dosage: ?          OTHER FREQUENCY:Q4WEEKS;?
     Route: 008
     Dates: start: 20171011, end: 20171011
  2. ZYVOX [Concomitant]
     Active Substance: LINEZOLID
  3. DEPOCYT [Suspect]
     Active Substance: CYTARABINE
     Indication: PROPHYLAXIS
     Dosage: ?          OTHER FREQUENCY:Q4WEEKS;?
     Route: 008
     Dates: start: 20171011, end: 20171011
  4. RYDAPT [Concomitant]
     Active Substance: MIDOSTAURIN
  5. VIDAZA [Concomitant]
     Active Substance: AZACITIDINE
  6. DEXAMETHASONE. [Concomitant]
     Active Substance: DEXAMETHASONE
  7. NOXAFIL [Concomitant]
     Active Substance: POSACONAZOLE
  8. IDHIFA [Concomitant]
     Active Substance: ENASIDENIB MESYLATE
  9. ACYCLOVIR. [Concomitant]
     Active Substance: ACYCLOVIR
  10. GABAPENTIN. [Concomitant]
     Active Substance: GABAPENTIN

REACTIONS (11)
  - Weight decreased [None]
  - Weight bearing difficulty [None]
  - Paralysis [None]
  - Hypoaesthesia [None]
  - Anal incontinence [None]
  - Guillain-Barre syndrome [None]
  - Muscle atrophy [None]
  - Demyelination [None]
  - Urinary retention [None]
  - Muscular weakness [None]
  - Respiratory distress [None]

NARRATIVE: CASE EVENT DATE: 20171012
